FAERS Safety Report 8798993 (Version 2)
Quarter: 2012Q4

REPORT INFORMATION
  Report Type: 
  Country: US (occurrence: US)
  Receive Date: 20120920
  Receipt Date: 20121106
  Transmission Date: 20130627
  Serious: No
  Sender: FDA-Public Use
  Company Number: US-FRI-1000038674

PATIENT
  Age: 60 Year
  Sex: Female

DRUGS (6)
  1. BYSTOLIC [Suspect]
     Indication: HYPERTENSION
     Dosage: 5 mg
     Route: 048
     Dates: start: 201206, end: 2012
  2. BYSTOLIC [Suspect]
     Indication: HYPERTENSION
     Dosage: 10 mg
     Route: 048
     Dates: start: 2012, end: 2012
  3. ARMOUR THYROID [Suspect]
     Indication: HYPOTHYROIDISM
     Dosage: 60 mg
     Route: 048
     Dates: start: 2007, end: 2012
  4. ARMOUR THYROID [Suspect]
     Dosage: 120 mg
     Dates: start: 2012
  5. LISINOPRIL [Concomitant]
     Indication: HYPERTENSION
     Dosage: 20 mg
  6. MULTIVITAMIN [Concomitant]

REACTIONS (3)
  - Hypothyroidism [Recovered/Resolved]
  - Headache [Recovered/Resolved]
  - Drug ineffective [Recovered/Resolved]
